FAERS Safety Report 6399626-8 (Version None)
Quarter: 2009Q4

REPORT INFORMATION
  Report Type: 
  Country: None (occurrence: None)
  Receive Date: 20091014
  Receipt Date: 20090826
  Transmission Date: 20100525
  Serious: No
  Sender: FDA-Public Use
  Company Number: US-BAYER-200931574NA

PATIENT
  Age: 21 Year
  Sex: Female
  Weight: 73 kg

DRUGS (3)
  1. MIRENA [Suspect]
     Indication: CONTRACEPTION
     Dosage: CONTINUOUS DELIVERY
     Route: 015
     Dates: start: 20080801
  2. ANTIBIOTICS [Concomitant]
     Indication: SINUSITIS
  3. STEROID CREAM [Concomitant]
     Indication: SKIN DISORDER

REACTIONS (13)
  - ALOPECIA [None]
  - EAR INFECTION [None]
  - FATIGUE [None]
  - GASTROOESOPHAGEAL REFLUX DISEASE [None]
  - MIGRAINE [None]
  - NAUSEA [None]
  - PAIN [None]
  - SINUSITIS [None]
  - SKIN DISORDER [None]
  - VAGINAL DISCHARGE [None]
  - VAGINAL HAEMORRHAGE [None]
  - VULVOVAGINAL MYCOTIC INFECTION [None]
  - WEIGHT INCREASED [None]
